FAERS Safety Report 10359405 (Version 1)
Quarter: 2014Q3

REPORT INFORMATION
  Report Type: Spontaneous
  Country: US (occurrence: None)
  Receive Date: 20140801
  Receipt Date: 20140801
  Transmission Date: 20150326
  Serious: No
  Sender: FDA-Public Use
  Company Number: None

PATIENT
  Age: 66 Year
  Sex: Male
  Weight: 79.38 kg

DRUGS (1)
  1. ANDRODERM [Suspect]
     Active Substance: TESTOSTERONE
     Indication: BLOOD TESTOSTERONE DECREASED
     Dosage: 1 PATCH ONCE DAILY APPLIED AS MEDICATED PATCH TO SKIN
     Route: 061
     Dates: start: 20140501, end: 20140701

REACTIONS (1)
  - Application site dermatitis [None]

NARRATIVE: CASE EVENT DATE: 20140701
